FAERS Safety Report 16850494 (Version 1)
Quarter: 2019Q3

REPORT INFORMATION
  Report Type: Report from Study
  Country: US (occurrence: US)
  Receive Date: 20190925
  Receipt Date: 20190925
  Transmission Date: 20191005
  Serious: Yes (Other)
  Sender: FDA-Public Use
  Company Number: US-JNJFOC-20190736957

PATIENT
  Age: 72 Year
  Sex: Female

DRUGS (42)
  1. ACYCLOVIR. [Concomitant]
     Active Substance: ACYCLOVIR
  2. VITAMINS WITH MINERALS [Concomitant]
     Active Substance: MINERALS\VITAMINS
  3. CRESTOR [Concomitant]
     Active Substance: ROSUVASTATIN CALCIUM
  4. L-METHYLFOLATE [Concomitant]
     Active Substance: LEVOMEFOLIC ACID
  5. VITAMIN E                          /00110501/ [Concomitant]
     Active Substance: TOCOPHEROL
  6. WELLBUTRIN [Concomitant]
     Active Substance: BUPROPION HYDROCHLORIDE
  7. CHLORZOXAZONE. [Concomitant]
     Active Substance: CHLORZOXAZONE
  8. METOPROLOL TARTRATE. [Concomitant]
     Active Substance: METOPROLOL TARTRATE
  9. NYSTATIN. [Concomitant]
     Active Substance: NYSTATIN
  10. OXYCODONE HYDROCHLORIDE. [Concomitant]
     Active Substance: OXYCODONE HYDROCHLORIDE
  11. PIOGLITAZONE HCL [Concomitant]
     Active Substance: PIOGLITAZONE
  12. PROZAC [Concomitant]
     Active Substance: FLUOXETINE HYDROCHLORIDE
  13. VITAMIN D                          /00107901/ [Concomitant]
     Active Substance: ERGOCALCIFEROL
  14. ZITHROMAX [Concomitant]
     Active Substance: AZITHROMYCIN DIHYDRATE
  15. BACTRIM [Concomitant]
     Active Substance: SULFAMETHOXAZOLE\TRIMETHOPRIM
     Route: 065
  16. CARBIDOPA. [Concomitant]
     Active Substance: CARBIDOPA
     Route: 065
  17. COMPAZINE                          /00013302/ [Concomitant]
     Active Substance: PROCHLORPERAZINE EDISYLATE
  18. LIDOCAINE. [Concomitant]
     Active Substance: LIDOCAINE
  19. PANTOPRAZOLE SODIUM. [Concomitant]
     Active Substance: PANTOPRAZOLE SODIUM
  20. TRULICITY [Concomitant]
     Active Substance: DULAGLUTIDE
  21. PLAVIX [Suspect]
     Active Substance: CLOPIDOGREL BISULFATE
     Indication: PRODUCT USED FOR UNKNOWN INDICATION
     Route: 065
  22. ANASTROZOLE. [Concomitant]
     Active Substance: ANASTROZOLE
     Route: 065
  23. NORCO [Concomitant]
     Active Substance: ACETAMINOPHEN\HYDROCODONE BITARTRATE
  24. LORATADINE. [Concomitant]
     Active Substance: LORATADINE
  25. OMNICEF [Concomitant]
     Active Substance: CEFDINIR
  26. ONDANSETRON [Concomitant]
     Active Substance: ONDANSETRON
  27. VESICARE [Concomitant]
     Active Substance: SOLIFENACIN SUCCINATE
  28. IMBRUVICA [Suspect]
     Active Substance: IBRUTINIB
     Indication: CHRONIC LYMPHOCYTIC LEUKAEMIA
     Route: 048
     Dates: start: 20190607
  29. IMBRUVICA [Suspect]
     Active Substance: IBRUTINIB
     Route: 048
     Dates: start: 20190528
  30. CYCLOBENZAPRINE. [Concomitant]
     Active Substance: CYCLOBENZAPRINE
  31. KEFLEX [Concomitant]
     Active Substance: CEPHALEXIN
  32. ALLOPURINOL. [Concomitant]
     Active Substance: ALLOPURINOL
     Route: 065
  33. COENZYME Q10 [Concomitant]
     Active Substance: UBIDECARENONE
  34. FLAGYL [Concomitant]
     Active Substance: METRONIDAZOLE\METRONIDAZOLE HYDROCHLORIDE
  35. FLUCONAZOLE. [Concomitant]
     Active Substance: FLUCONAZOLE
  36. VALACICLOVIR HYDROCHLORIDE [Concomitant]
     Active Substance: VALACYCLOVIR HYDROCHLORIDE
  37. CALCIUM [Concomitant]
     Active Substance: CALCIUM
  38. FENOFIBRATE. [Concomitant]
     Active Substance: FENOFIBRATE
  39. PREDNISONE. [Concomitant]
     Active Substance: PREDNISONE
  40. ULORIC [Concomitant]
     Active Substance: FEBUXOSTAT
  41. OMEGA 3 [Concomitant]
     Active Substance: OMEGA-3 FATTY ACIDS
  42. PROMETHAZINE HCL [Concomitant]
     Active Substance: PROMETHAZINE HYDROCHLORIDE

REACTIONS (8)
  - Haematoma [Recovered/Resolved]
  - Fatigue [Unknown]
  - Hypogammaglobulinaemia [Unknown]
  - Asthenia [Unknown]
  - Contusion [Recovered/Resolved]
  - Cough [Recovered/Resolved]
  - Pharyngitis streptococcal [Recovered/Resolved]
  - Increased tendency to bruise [Recovered/Resolved]

NARRATIVE: CASE EVENT DATE: 20190709
